FAERS Safety Report 6500129-8 (Version None)
Quarter: 2009Q4

REPORT INFORMATION
  Report Type: 
  Country: None (occurrence: None)
  Receive Date: 20091127
  Receipt Date: 20081223
  Transmission Date: 20100525
  Serious: Yes (Other)
  Sender: FDA-Public Use
  Company Number: WAES 0708USA04706

PATIENT
  Age: 53 Year
  Sex: Female

DRUGS (4)
  1. FOSAMAX [Suspect]
     Indication: OSTEOPOROSIS
     Dosage: 70 MG/WKY/PO
     Route: 048
     Dates: start: 20020327, end: 20051102
  2. ZOCOR [Concomitant]
  3. CALCIUM (UNSPECIFIED) [Concomitant]
  4. HORMONES (UNSPECIFIED) [Concomitant]

REACTIONS (11)
  - ARTHRALGIA [None]
  - BRUXISM [None]
  - ECCHYMOSIS [None]
  - FALL [None]
  - GASTROOESOPHAGEAL REFLUX DISEASE [None]
  - JOINT SWELLING [None]
  - MEDICAL DEVICE COMPLICATION [None]
  - ORAL INFECTION [None]
  - OSTEONECROSIS [None]
  - SENSITIVITY OF TEETH [None]
  - TOOTH FRACTURE [None]
